FAERS Safety Report 14554657 (Version 1)
Quarter: 2018Q1

REPORT INFORMATION
  Report Type: Spontaneous
  Country: US (occurrence: US)
  Receive Date: 20180217
  Receipt Date: 20180217
  Transmission Date: 20180509
  Serious: Yes (Hospitalization)
  Sender: FDA-Public Use
  Company Number: None

PATIENT
  Age: 56 Year
  Sex: Female
  Weight: 81.65 kg

DRUGS (1)
  1. GAMMAPLEX [Suspect]
     Active Substance: HUMAN IMMUNOGLOBULIN G
     Indication: CHRONIC INFLAMMATORY DEMYELINATING POLYRADICULONEUROPATHY
     Dosage: 160 GRAMS OVER 4 DAYS IV
     Route: 042
     Dates: start: 20171018

REACTIONS (2)
  - Therapy cessation [None]
  - Headache [None]

NARRATIVE: CASE EVENT DATE: 20171020
